FAERS Safety Report 21004569 (Version 1)
Quarter: 2022Q2

REPORT INFORMATION
  Report Type: Spontaneous
  Country: US (occurrence: US)
  Receive Date: 20220624
  Receipt Date: 20220624
  Transmission Date: 20220721
  Serious: No
  Sender: FDA-Public Use
  Company Number: US-PFIZER INC-202200887539

PATIENT
  Sex: Female
  Weight: 85.73 kg

DRUGS (2)
  1. LEVOTHYROXINE SODIUM [Suspect]
     Active Substance: LEVOTHYROXINE SODIUM
     Indication: Thyroid disorder
     Dosage: UNK
  2. PAXLOVID [Concomitant]
     Active Substance: NIRMATRELVIR\RITONAVIR
     Indication: COVID-19
     Dosage: 3TAKE FOR 5 DAYS, 3 IN THE MORNING, 3 IN THE NIGHT

REACTIONS (4)
  - Product prescribing error [Unknown]
  - COVID-19 [Unknown]
  - Nervousness [Unknown]
  - Taste disorder [Unknown]
